FAERS Safety Report 12922508 (Version 1)
Quarter: 2016Q4

REPORT INFORMATION
  Report Type: Spontaneous
  Country: US (occurrence: US)
  Receive Date: 20161109
  Receipt Date: 20161109
  Transmission Date: 20170207
  Serious: Yes (Other)
  Sender: FDA-Public Use
  Company Number: US-LUNDBECK-DKLU2022112

PATIENT
  Sex: Female

DRUGS (5)
  1. ONFI [Suspect]
     Active Substance: CLOBAZAM
     Route: 048
  2. ONFI [Suspect]
     Active Substance: CLOBAZAM
     Route: 048
  3. ONFI [Suspect]
     Active Substance: CLOBAZAM
     Route: 065
  4. ONFI [Suspect]
     Active Substance: CLOBAZAM
     Indication: EPILEPSY
     Route: 048
  5. TOPAMAX [Concomitant]
     Active Substance: TOPIRAMATE
     Indication: PRODUCT USED FOR UNKNOWN INDICATION
     Route: 065

REACTIONS (1)
  - Seizure [Unknown]
